FAERS Safety Report 7086697-9 (Version None)
Quarter: 2010Q4

REPORT INFORMATION
  Report Type: 
  Country: None (occurrence: None)
  Receive Date: 20101105
  Receipt Date: 20101025
  Transmission Date: 20110411
  Serious: Yes (Hospitalization, Disabling)
  Sender: FDA-Public Use
  Company Number: US-ELI_LILLY_AND_COMPANY-US201003000484

PATIENT
  Sex: Female
  Weight: 73.469 kg

DRUGS (10)
  1. BYETTA [Suspect]
     Dosage: 10 UG, 2/D
     Route: 058
     Dates: start: 20060101, end: 20090501
  2. PLAVIX [Concomitant]
     Indication: CARDIAC DISORDER
     Dosage: 75 MG, DAILY (1/D)
     Dates: start: 20050101
  3. SYNTHROID [Concomitant]
     Dosage: 75 UG, DAILY (1/D)
  4. PROZAC [Concomitant]
     Indication: DEPRESSION
     Dosage: 40 MG, DAILY (1/D)
     Dates: start: 20050101
  5. LIPITOR [Concomitant]
     Dosage: 80 MG, DAILY (1/D)
     Dates: start: 20070215
  6. GLUCOPHAGE /USA/ [Concomitant]
     Indication: DIABETES MELLITUS
     Dosage: 500 MG, DAILY (1/D)
     Dates: start: 20060101
  7. COREG [Concomitant]
     Dosage: 3.125 MG, 2/D
  8. ASPIRIN /USA/ [Concomitant]
     Dosage: 81 MG, DAILY (1/D)
  9. LISINOPRIL /USA/ [Concomitant]
     Indication: HYPERTENSION
     Dosage: 5 MG, DAILY (1/D)
     Dates: start: 20080801
  10. FUROSEMIDE [Concomitant]
     Indication: DIURETIC THERAPY

REACTIONS (3)
  - MULTI-ORGAN DISORDER [None]
  - PANCREATITIS ACUTE [None]
  - RENAL DISORDER [None]
